FAERS Safety Report 23566676 (Version 1)
Quarter: 2024Q1

REPORT INFORMATION
  Report Type: Spontaneous
  Country: US (occurrence: US)
  Receive Date: 20240226
  Receipt Date: 20240226
  Transmission Date: 20240410
  Serious: No
  Sender: FDA-Public Use
  Company Number: US-AMNEAL PHARMACEUTICALS-2023-AMRX-01106

PATIENT
  Age: 71 Year
  Sex: Male
  Weight: 86.168 kg

DRUGS (16)
  1. RYTARY [Suspect]
     Active Substance: CARBIDOPA\LEVODOPA
     Indication: Parkinson^s disease
     Dosage: 2 (61.25/245 MG) CAPSULES, QID
     Route: 048
     Dates: start: 202302, end: 20230306
  2. RYTARY [Suspect]
     Active Substance: CARBIDOPA\LEVODOPA
     Dosage: 2 (61.25/245 MG) CAPSULES, 5 /DAY
     Route: 048
     Dates: start: 20230306
  3. RYTARY [Suspect]
     Active Substance: CARBIDOPA\LEVODOPA
     Dosage: 2 CAPSULES 4 TIMES A DAY AND 1-2 IF NEEDED AT 8 PM
     Route: 048
     Dates: start: 20230605
  4. RYTARY [Suspect]
     Active Substance: CARBIDOPA\LEVODOPA
     Dosage: 61.25/245 MG, 5 CAPSULES 4 TIMES A DAY (4-5 HRS BETWEEN DOSES)
     Route: 048
     Dates: start: 20230731
  5. RYTARY [Suspect]
     Active Substance: CARBIDOPA\LEVODOPA
     Dosage: 61.25/245 MG, 3 CAPSULES, 3 /DAY
     Route: 048
     Dates: start: 20230828
  6. AMANTADINE [Concomitant]
     Active Substance: AMANTADINE
     Indication: Parkinson^s disease
     Dosage: 1 (100 MG) TABLETS, BID
     Route: 048
  7. NEUPRO [Concomitant]
     Active Substance: ROTIGOTINE
     Indication: Parkinson^s disease
     Dosage: 2 MG, ONE PATCH DAILY
     Route: 062
  8. PREGABALIN [Concomitant]
     Active Substance: PREGABALIN
     Indication: Neuropathy peripheral
     Dosage: 1 (200 MG) TABLETS, TID
     Route: 048
  9. MIDODRINE [Concomitant]
     Active Substance: MIDODRINE
     Indication: Orthostatic hypotension
     Dosage: 1 (5 MG) TABLETS, TID
     Route: 048
  10. PYRIDOSTIGMINE [Concomitant]
     Active Substance: PYRIDOSTIGMINE
     Indication: Orthostatic hypotension
     Dosage: 1 (60 MG) TABLETS, TID
     Route: 048
  11. FLUDROCORTISONE [Concomitant]
     Active Substance: FLUDROCORTISONE
     Indication: Orthostatic hypotension
     Dosage: 1 (0.5 MG) TABLETS, QD
     Route: 048
  12. ASPIRIN [Concomitant]
     Active Substance: ASPIRIN
     Indication: Cerebrovascular accident
     Dosage: 1 (81 MG) TABLETS, QD
     Route: 048
  13. FLUOXETINE [Concomitant]
     Active Substance: FLUOXETINE HYDROCHLORIDE
     Indication: Depression
     Dosage: THREE (20 MG) CAPSULE, EVERY NIGHT
     Route: 048
  14. ROSUVASTATIN [Concomitant]
     Active Substance: ROSUVASTATIN
     Indication: Hyperlipidaemia
     Dosage: 5 MG, ONE CAPLET AT NIGHT
     Route: 048
  15. MELATONIN [Concomitant]
     Active Substance: MELATONIN
     Indication: Sleep disorder
     Dosage: 10 MG, ONE TABLET EVERY NIGHT
     Route: 048
  16. VITAMINS [Concomitant]
     Active Substance: VITAMINS
     Indication: Product used for unknown indication
     Dosage: ONE TABLET DAILY
     Route: 048

REACTIONS (1)
  - Dizziness [Not Recovered/Not Resolved]

NARRATIVE: CASE EVENT DATE: 20230201
